FAERS Safety Report 13716732 (Version 1)
Quarter: 2017Q3

REPORT INFORMATION
  Report Type: Spontaneous
  Country: US (occurrence: US)
  Receive Date: 20170703
  Receipt Date: 20170703
  Transmission Date: 20171127
  Serious: Yes (Hospitalization)
  Sender: FDA-Public Use
  Company Number: None

PATIENT
  Age: 58 Year
  Sex: Male

DRUGS (1)
  1. AZATHIOPRINE 50 MG [Suspect]
     Active Substance: AZATHIOPRINE
     Dates: start: 20140326

REACTIONS (2)
  - Myocardial infarction [None]
  - Surgery [None]

NARRATIVE: CASE EVENT DATE: 20170426
